FAERS Safety Report 8712868 (Version 2)
Quarter: 2012Q4

REPORT INFORMATION
  Report Type: 
  Country: US (occurrence: US)
  Receive Date: 20120808
  Receipt Date: 20120828
  Transmission Date: 20130627
  Serious: Yes (Hospitalization, Other)
  Sender: FDA-Public Use
  Company Number: US-AMGEN-USASP2012048153

PATIENT
  Age: 25 Year
  Sex: Female

DRUGS (1)
  1. EPOGEN [Suspect]
     Indication: RENAL FAILURE CHRONIC
     Dosage: 6000 IU, 3 times/wk
     Dates: start: 2007

REACTIONS (2)
  - Pancytopenia [Not Recovered/Not Resolved]
  - Bone marrow failure [Not Recovered/Not Resolved]
